FAERS Safety Report 6653077-7 (Version None)
Quarter: 2010Q1

REPORT INFORMATION
  Report Type: 
  Country: None (occurrence: None)
  Receive Date: 20100326
  Receipt Date: 20100318
  Transmission Date: 20100710
  Serious: Yes (Hospitalization)
  Sender: FDA-Public Use
  Company Number: PHHO2010AU00536

PATIENT
  Sex: Male

DRUGS (3)
  1. CERTICAN [Suspect]
     Indication: RENAL TRANSPLANT
     Dosage: 0.75 MG, BID
     Route: 048
     Dates: start: 20090625
  2. CERTICAN [Suspect]
     Dosage: 1.5 MG, BID
     Route: 048
     Dates: start: 20090625
  3. PREDNISOLONE [Concomitant]
     Indication: RENAL TRANSPLANT
     Dosage: 10 MG DAILY
     Route: 048
     Dates: start: 20090730

REACTIONS (9)
  - DEEP VEIN THROMBOSIS [None]
  - INFLAMMATION [None]
  - OEDEMA PERIPHERAL [None]
  - PAIN [None]
  - SKIN NECROSIS [None]
  - SKIN ULCER [None]
  - STASIS DERMATITIS [None]
  - TENDERNESS [None]
  - WOUND INFECTION PSEUDOMONAS [None]
